FAERS Safety Report 20783638 (Version 3)
Quarter: 2022Q3

REPORT INFORMATION
  Report Type: Report from Study
  Country: US (occurrence: US)
  Receive Date: 20220504
  Receipt Date: 20220826
  Transmission Date: 20221026
  Serious: No
  Sender: FDA-Public Use
  Company Number: US-NOVARTISTESTPH-NVSC2022US102282

PATIENT
  Age: 53 Year
  Sex: Female

DRUGS (2)
  1. KESIMPTA [Suspect]
     Active Substance: OFATUMUMAB
     Indication: Product used for unknown indication
     Dosage: 20 MG, QW
     Route: 058
     Dates: start: 20220430
  2. KESIMPTA [Suspect]
     Active Substance: OFATUMUMAB
     Dosage: 20 MG, QMO
     Route: 058

REACTIONS (6)
  - Neuralgia [Not Recovered/Not Resolved]
  - Eye pain [Not Recovered/Not Resolved]
  - Constipation [Not Recovered/Not Resolved]
  - Libido decreased [Not Recovered/Not Resolved]
  - Headache [Recovered/Resolved]
  - Fatigue [Recovered/Resolved]

NARRATIVE: CASE EVENT DATE: 20220430
